FAERS Safety Report 8789354 (Version 1)
Quarter: 2012Q4

REPORT INFORMATION
  Report Type: Spontaneous
  Country: US (occurrence: None)
  Receive Date: 20120910
  Receipt Date: 20120910
  Transmission Date: 20130627
  Serious: Yes (Death)
  Sender: FDA-Public Use
  Company Number: None

PATIENT
  Age: 72 Year
  Sex: Female
  Weight: 88 kg

DRUGS (2)
  1. JANUVIA [Suspect]
     Dates: start: 200910, end: 201004
  2. BYETTA [Suspect]
     Dates: start: 20110530, end: 20120206

REACTIONS (1)
  - Pancreatic carcinoma [None]
